FAERS Safety Report 11827225 (Version 1)
Quarter: 2015Q4

REPORT INFORMATION
  Report Type: Spontaneous
  Country: FR (occurrence: FR)
  Receive Date: 20151211
  Receipt Date: 20151211
  Transmission Date: 20160305
  Serious: Yes (Other)
  Sender: FDA-Public Use
  Company Number: FR-MYLANLABS-2015M1044313

PATIENT
  Age: 40 Year
  Sex: Female

DRUGS (1)
  1. NICARDIPINE [Suspect]
     Active Substance: NICARDIPINE
     Indication: PRE-ECLAMPSIA
     Route: 065

REACTIONS (2)
  - Maternal exposure during delivery [Recovered/Resolved]
  - Abortion [Recovered/Resolved]
